FAERS Safety Report 4707013-0 (Version None)
Quarter: 2005Q3

REPORT INFORMATION
  Report Type: 
  Country: None (occurrence: None)
  Receive Date: 20050705
  Receipt Date: 20050705
  Transmission Date: 20060218
  Serious: Yes (Death, Hospitalization)
  Sender: FDA-Public Use
  Company Number: None

PATIENT
  Sex: Female
  Weight: 94 kg

DRUGS (3)
  1. EPIRUBICIN [Suspect]
     Indication: GASTRIC CANCER
     Dates: start: 20050620
  2. CISPLATIN [Suspect]
     Indication: GASTRIC CANCER
     Dates: start: 20050620
  3. FLUOROURACIL [Suspect]
     Indication: GASTRIC CANCER
     Dates: start: 20050620

REACTIONS (19)
  - ABDOMINAL PAIN [None]
  - DEHYDRATION [None]
  - DIARRHOEA [None]
  - HYPOKALAEMIA [None]
  - HYPOTENSION [None]
  - HYPOXIA [None]
  - ILEUS [None]
  - INTESTINAL ISCHAEMIA [None]
  - METABOLIC ACIDOSIS [None]
  - NAUSEA [None]
  - NEUTROPENIA [None]
  - PULMONARY EMBOLISM [None]
  - RENAL FAILURE ACUTE [None]
  - RENAL TUBULAR NECROSIS [None]
  - RESPIRATORY DISTRESS [None]
  - SHOCK [None]
  - SYNCOPE [None]
  - THROMBOCYTOPENIA [None]
  - VOMITING [None]
